FAERS Safety Report 5603176-3 (Version None)
Quarter: 2008Q1

REPORT INFORMATION
  Report Type: 
  Country: None (occurrence: None)
  Receive Date: 20080123
  Receipt Date: 20080111
  Transmission Date: 20080703
  Serious: Yes (Other)
  Sender: FDA-Public Use
  Company Number: 2008001273

PATIENT
  Age: 71 Year
  Sex: Male
  Weight: 79.4 kg

DRUGS (3)
  1. ROGAINE 5 [Suspect]
     Indication: ALOPECIA
     Dosage: HALF OF CAP ONCE, TOPICAL
     Route: 061
     Dates: start: 20080108, end: 20080108
  2. LIPITOR [Concomitant]
  3. EFFEXOR [Concomitant]

REACTIONS (3)
  - PAIN OF SKIN [None]
  - SKIN DISORDER [None]
  - SUNBURN [None]
